FAERS Safety Report 4269675-4 (Version None)
Quarter: 2004Q1

REPORT INFORMATION
  Report Type: 
  Country: None (occurrence: None)
  Receive Date: 20040112
  Receipt Date: 20040106
  Transmission Date: 20041129
  Serious: Yes (Death)
  Sender: FDA-Public Use
  Company Number: NSADSS2003005445

PATIENT
  Age: 87 Year
  Sex: Female
  Weight: 69.4003 kg

DRUGS (6)
  1. REMINYL [Suspect]
     Dosage: 4 MG, 2 IN 1 DAY, ORAL
     Route: 048
  2. BETCIYAN (ALL OTHER THERAPEUTIC PRODUCTS) [Concomitant]
  3. DETROL [Concomitant]
  4. GLUCOTROL [Concomitant]
  5. GLUCOPHAGE [Concomitant]
  6. ZESTRIL [Concomitant]

REACTIONS (1)
  - DEATH [None]
